FAERS Safety Report 25092578 (Version 1)
Quarter: 2025Q1

REPORT INFORMATION
  Report Type: Spontaneous
  Country: JP (occurrence: JP)
  Receive Date: 20250319
  Receipt Date: 20250319
  Transmission Date: 20250409
  Serious: Yes (Hospitalization)
  Sender: EMD SERONO INC
  Company Number: JP-Merck Healthcare KGaA-2025012728

PATIENT
  Age: 71 Year
  Sex: Male
  Weight: 63 kg

DRUGS (4)
  1. METGLUCO [Suspect]
     Active Substance: METFORMIN HYDROCHLORIDE
     Indication: Diabetes mellitus
  2. SITAGLIPTIN PHOSPHATE [Concomitant]
     Active Substance: SITAGLIPTIN PHOSPHATE
     Indication: Diabetes mellitus
  3. SAXAGLIPTIN [Concomitant]
     Active Substance: SAXAGLIPTIN
     Indication: Product used for unknown indication
  4. IMEGLIMIN HYDROCHLORIDE [Concomitant]
     Active Substance: IMEGLIMIN HYDROCHLORIDE
     Indication: Product used for unknown indication

REACTIONS (5)
  - Pyelonephritis acute [Unknown]
  - Glycosylated haemoglobin increased [Unknown]
  - Albumin urine present [Unknown]
  - Low density lipoprotein increased [Unknown]
  - Glomerular filtration rate decreased [Unknown]

NARRATIVE: CASE EVENT DATE: 20211201
